FAERS Safety Report 6578521-5 (Version None)
Quarter: 2010Q1

REPORT INFORMATION
  Report Type: 
  Country: None (occurrence: None)
  Receive Date: 20100211
  Receipt Date: 20100209
  Transmission Date: 20100710
  Serious: Yes (Death, Life-Threatening, Hospitalization, Other)
  Sender: FDA-Public Use
  Company Number: PHHO2008CA04926

PATIENT
  Sex: Male
  Weight: 78.6 kg

DRUGS (6)
  1. AFINITOR [Suspect]
     Indication: RENAL CANCER METASTATIC
     Dosage: UNK
     Route: 048
     Dates: start: 20070823, end: 20080318
  2. TYLENOL-500 [Concomitant]
     Indication: ANKYLOSING SPONDYLITIS
  3. TYLENOL-500 [Concomitant]
     Indication: ARTHRITIS
  4. METFORMIN HCL [Concomitant]
     Indication: HYPERGLYCAEMIA
  5. GLYBURIDE [Concomitant]
     Indication: HYPERGLYCAEMIA
  6. IMODIUM [Concomitant]
     Indication: DIARRHOEA

REACTIONS (15)
  - ASCITES [None]
  - ATELECTASIS [None]
  - BONE SCAN ABNORMAL [None]
  - DECREASED APPETITE [None]
  - DIABETIC KETOACIDOSIS [None]
  - DISCOMFORT [None]
  - DYSPHAGIA [None]
  - LUNG DISORDER [None]
  - LYMPHADENOPATHY [None]
  - MALIGNANT NEOPLASM PROGRESSION [None]
  - METASTASIS [None]
  - NAUSEA [None]
  - PAIN [None]
  - PLEURAL EFFUSION [None]
  - VOMITING [None]
